FAERS Safety Report 5115234-0 (Version None)
Quarter: 2006Q3

REPORT INFORMATION
  Report Type: 
  Country: None (occurrence: None)
  Receive Date: 20060921
  Receipt Date: 20060911
  Transmission Date: 20061208
  Serious: Yes (Other)
  Sender: FDA-Public Use
  Company Number: 2006US-03674

PATIENT
  Age: 18 Year
  Sex: Male

DRUGS (1)
  1. MINOCYCLINE HYDROCHLORIDE [Suspect]
     Dosage: 100 MG, QD
     Dates: start: 20060731

REACTIONS (1)
  - GRAND MAL CONVULSION [None]
